FAERS Safety Report 4423288-X (Version None)
Quarter: 2004Q3

REPORT INFORMATION
  Report Type: 
  Country: None (occurrence: None)
  Receive Date: 20040811
  Receipt Date: 20040803
  Transmission Date: 20050211
  Serious: Yes (Other)
  Sender: FDA-Public Use
  Company Number: DSA_80650_2004

PATIENT
  Age: 60 Year
  Sex: Female
  Weight: 136.4 kg

DRUGS (2)
  1. PAXIL [Suspect]
     Indication: DRUG USE FOR UNKNOWN INDICATION
     Route: 048
  2. SODIUM OXYBATE [Suspect]
     Indication: CATAPLEXY
     Dosage: 6G AT NIGHT
     Route: 048
     Dates: start: 20031217

REACTIONS (1)
  - CATAPLEXY [None]
